FAERS Safety Report 8734950 (Version 2)
Quarter: 2013Q4

REPORT INFORMATION
  Report Type: Report from Study
  Country: US (occurrence: US)
  Receive Date: 20120821
  Receipt Date: 20131008
  Transmission Date: 20140711
  Serious: Yes (Hospitalization, Other)
  Sender: FDA-Public Use
  Company Number: US-TEVA-353910USA

PATIENT
  Age: 79 Year
  Sex: Male

DRUGS (1)
  1. COPAXONE [Suspect]
     Indication: MULTIPLE SCLEROSIS
     Dates: start: 20090101

REACTIONS (4)
  - Cerebrovascular accident [Unknown]
  - Wound [Unknown]
  - Bacterial disease carrier [Not Recovered/Not Resolved]
  - Cystitis [Not Recovered/Not Resolved]
